FAERS Safety Report 5090647-4 (Version None)
Quarter: 2006Q3

REPORT INFORMATION
  Report Type: 
  Country: None (occurrence: None)
  Receive Date: 20060823
  Receipt Date: 20060810
  Transmission Date: 20061208
  Serious: Yes (Hospitalization, Other)
  Sender: FDA-Public Use
  Company Number: USA-2003-0008752

PATIENT
  Age: 39 Year
  Sex: Male
  Weight: 95.2 kg

DRUGS (7)
  1. OXYCONTIN [Suspect]
     Indication: PAIN
     Dosage: ORAL
     Route: 048
     Dates: start: 20000101, end: 20010501
  2. VICODIN [Concomitant]
  3. ALPRAZOLAM [Concomitant]
  4. CARISOPRODOL [Concomitant]
  5. MOTRIN [Concomitant]
  6. SOMA [Concomitant]
  7. XANAX [Concomitant]

REACTIONS (21)
  - ACUTE RESPIRATORY FAILURE [None]
  - ANXIETY DISORDER [None]
  - ATELECTASIS [None]
  - BLOOD PH DECREASED [None]
  - BLOOD POTASSIUM DECREASED [None]
  - BRONCHITIS ACUTE [None]
  - CARDIAC ARREST [None]
  - CATHETER RELATED COMPLICATION [None]
  - CONDITION AGGRAVATED [None]
  - DEHYDRATION [None]
  - DEPRESSION [None]
  - DRUG ABUSER [None]
  - DRUG DEPENDENCE [None]
  - DRUG WITHDRAWAL SYNDROME [None]
  - INADEQUATE ANALGESIA [None]
  - LUNG INFECTION [None]
  - RESPIRATORY ARREST [None]
  - SINUS TACHYCARDIA [None]
  - SOMNOLENCE [None]
  - SPUTUM PURULENT [None]
  - WEIGHT DECREASED [None]
